FAERS Safety Report 10764035 (Version 1)
Quarter: 2015Q1

REPORT INFORMATION
  Report Type: Spontaneous
  Country: US (occurrence: US)
  Receive Date: 20150204
  Receipt Date: 20150204
  Transmission Date: 20150721
  Serious: Yes (Hospitalization, Disabling, Other)
  Sender: FDA-Public Use
  Company Number: US-MERCK-1502USA000488

PATIENT
  Sex: Male

DRUGS (1)
  1. KEYTRUDA [Suspect]
     Active Substance: PEMBROLIZUMAB
     Indication: MALIGNANT MELANOMA
     Dosage: 2 MG/KG, INFUSION OVER 30 MINUTES/ EVERY 3 WEEKS
     Route: 042
     Dates: start: 201411

REACTIONS (4)
  - Gait disturbance [Recovering/Resolving]
  - Dyspraxia [Recovering/Resolving]
  - Malignant neoplasm progression [Unknown]
  - Muscular weakness [Recovering/Resolving]

NARRATIVE: CASE EVENT DATE: 201412
